FAERS Safety Report 9331476 (Version 1)
Quarter: 2013Q2

REPORT INFORMATION
  Report Type: Other
  Country: GB (occurrence: GB)
  Receive Date: 20130605
  Receipt Date: 20130605
  Transmission Date: 20140414
  Serious: Yes (Death, Hospitalization)
  Sender: FDA-Public Use
  Company Number: GB-WATSON-2013-09959

PATIENT
  Age: 75 Year
  Sex: Male

DRUGS (2)
  1. SERTRALINE HYDROCHLORIDE (UNKNOWN) [Suspect]
     Indication: DEPRESSION
     Dosage: 50 MG, UNKNOWN
     Route: 048
  2. CLOZARIL [Suspect]
     Indication: SCHIZOPHRENIA
     Dosage: 450 MG, UNKNOWN
     Route: 048
     Dates: start: 20010701, end: 20130118

REACTIONS (8)
  - Cerebrovascular accident [Fatal]
  - Fall [Unknown]
  - Eosinophil count increased [Unknown]
  - General physical health deterioration [Unknown]
  - Somnolence [Unknown]
  - Lung cancer metastatic [Fatal]
  - Neutrophil count increased [Unknown]
  - White blood cell count increased [Unknown]
